FAERS Safety Report 8388073-5 (Version None)
Quarter: 2012Q2

REPORT INFORMATION
  Report Type: 
  Country: None (occurrence: None)
  Receive Date: 20120525
  Receipt Date: 20120522
  Transmission Date: 20120825
  Serious: Yes (Life-Threatening, Hospitalization)
  Sender: FDA-Public Use
  Company Number: FR-B.I. PHARMACEUTICALS,INC./RIDGEFIELD-2011-FF-00103FF

PATIENT
  Sex: Female

DRUGS (7)
  1. PRAMIPEXOLE DIHYDROCHLORIDE [Suspect]
     Indication: RESTLESS LEGS SYNDROME
     Dosage: 0.18 MG WITH POSSIBLE INCREASE UP TO 0.36 MG IF NEEDED
     Route: 048
     Dates: start: 20080403, end: 20090101
  2. PRAMIPEXOLE DIHYDROCHLORIDE [Suspect]
     Dosage: 0.35 MG
     Route: 048
     Dates: start: 20090101, end: 20090101
  3. PRAMIPEXOLE DIHYDROCHLORIDE [Suspect]
     Dosage: 0.7 MG
     Route: 048
     Dates: start: 20090401, end: 20100901
  4. SYMBICORT [Concomitant]
     Dosage: 800 MG
     Route: 055
  5. PRAMIPEXOLE DIHYDROCHLORIDE [Suspect]
     Dosage: 1.05 MG
     Route: 048
     Dates: start: 20100901, end: 20110226
  6. NOCTAMIDE [Concomitant]
     Dosage: 2 MG
     Route: 048
  7. ZOLOFT [Concomitant]
     Dosage: 100 MG
     Route: 048

REACTIONS (4)
  - PATHOLOGICAL GAMBLING [None]
  - DEPRESSION [None]
  - SUICIDE ATTEMPT [None]
  - THEFT [None]
